FAERS Safety Report 5151648-0 (Version None)
Quarter: 2006Q4

REPORT INFORMATION
  Report Type: 
  Country: None (occurrence: None)
  Receive Date: 20061109
  Receipt Date: 20061024
  Transmission Date: 20070319
  Serious: Yes (Death)
  Sender: FDA-Public Use
  Company Number: DSA_61248_2006

PATIENT
  Age: 30 Year

DRUGS (3)
  1. DIAZEPAM [Suspect]
     Dosage: PO
     Route: 048
  2. METHADONE HCL [Suspect]
     Dosage: PO
     Route: 048
  3. OXYCODONE HCL [Suspect]
     Dosage: PO
     Route: 048

REACTIONS (3)
  - CARDIAC ARREST [None]
  - DRUG TOXICITY [None]
  - RESPIRATORY ARREST [None]
